FAERS Safety Report 8966322 (Version 2)
Quarter: 2013Q1

REPORT INFORMATION
  Report Type: Report from Study
  Country: AU (occurrence: AU)
  Receive Date: 20121217
  Receipt Date: 20130313
  Transmission Date: 20140127
  Serious: Yes (Hospitalization, Other)
  Sender: FDA-Public Use
  Company Number: AU-JNJFOC-20120312810

PATIENT
  Age: 59 Year
  Sex: Male
  Weight: 92.7 kg

DRUGS (22)
  1. ABIRATERONE ACETATE [Suspect]
     Indication: PROSTATE CANCER METASTATIC
     Route: 048
     Dates: start: 20111215, end: 20120517
  2. ABIRATERONE ACETATE [Suspect]
     Indication: PROSTATE CANCER METASTATIC
     Route: 048
     Dates: start: 20120524
  3. PREDNISOLONE [Suspect]
     Indication: PROSTATE CANCER METASTATIC
     Route: 048
     Dates: start: 20111214, end: 20120517
  4. AUGMENTIN DUO FORTE [Concomitant]
     Indication: LOWER RESPIRATORY TRACT INFECTION
     Dates: start: 20120502, end: 20120512
  5. AUGMENTIN DUO FORTE [Concomitant]
     Indication: LOWER RESPIRATORY TRACT INFECTION
     Dates: start: 20120325, end: 20120328
  6. AMPICILLIN [Concomitant]
     Indication: LOWER RESPIRATORY TRACT INFECTION
     Dates: start: 20120324, end: 20120325
  7. PIPERACILLIN AND TAZOBACTAM [Concomitant]
     Indication: LOWER RESPIRATORY TRACT INFECTION
     Dates: start: 20120326, end: 20120328
  8. ROXITHROMYCIN [Concomitant]
     Indication: LOWER RESPIRATORY TRACT INFECTION
     Dates: start: 20120324, end: 20120326
  9. ZOLADEX [Concomitant]
     Indication: HORMONE THERAPY
     Dates: start: 2006
  10. SOMAC [Concomitant]
     Indication: GASTROINTESTINAL DISORDER THERAPY
     Dates: start: 2009
  11. MEROPENEM [Concomitant]
     Indication: PNEUMONIA
     Dates: start: 20120427, end: 20120502
  12. MEROPENEM [Concomitant]
     Indication: PNEUMONIA
     Dates: start: 20120510, end: 20120514
  13. MEROPENEM [Concomitant]
     Indication: PNEUMONIA
     Dates: start: 20120517, end: 20120517
  14. MEROPENEM [Concomitant]
     Indication: LOWER RESPIRATORY TRACT INFECTION
     Dates: start: 20120517, end: 20120517
  15. MEROPENEM [Concomitant]
     Indication: LOWER RESPIRATORY TRACT INFECTION
     Dates: start: 20120510, end: 20120514
  16. MEROPENEM [Concomitant]
     Indication: LOWER RESPIRATORY TRACT INFECTION
     Dates: start: 20120427, end: 20120502
  17. OXYCONTIN [Concomitant]
     Indication: PAIN
     Route: 065
     Dates: start: 20120425
  18. PARACETAMOL [Concomitant]
     Indication: PAIN
     Route: 065
     Dates: start: 20120427, end: 20120427
  19. ENDONE [Concomitant]
     Indication: PAIN
     Route: 065
     Dates: start: 20120425, end: 20120427
  20. MORPHINE [Concomitant]
     Indication: PAIN
     Dates: start: 20120425, end: 20120425
  21. SLOW K [Concomitant]
     Indication: ATRIAL FLUTTER
     Dates: start: 20120518, end: 20120518
  22. OXYCODONE [Concomitant]
     Indication: PNEUMONIA
     Dates: start: 20120517, end: 20120518

REACTIONS (6)
  - Atrial flutter [Recovered/Resolved]
  - Pneumonia [Recovered/Resolved]
  - Lower respiratory tract infection [Recovered/Resolved]
  - Pain [Recovered/Resolved]
  - Lower respiratory tract infection [Recovered/Resolved]
  - Lower respiratory tract infection [Recovered/Resolved]
